FAERS Safety Report 23175196 (Version 1)
Quarter: 2023Q4

REPORT INFORMATION
  Report Type: Spontaneous
  Country: CZ (occurrence: CZ)
  Receive Date: 20231113
  Receipt Date: 20231113
  Transmission Date: 20240110
  Serious: Yes (Other)
  Sender: FDA-Public Use
  Company Number: CZ-BRISTOL-MYERS SQUIBB COMPANY-2023-160132

PATIENT
  Age: 81 Year
  Sex: Male

DRUGS (1)
  1. OPDIVO [Suspect]
     Active Substance: NIVOLUMAB
     Indication: Malignant melanoma
     Dosage: DOSE : UNAVAILABLE;     FREQ : EVERY 4 WEEKS
     Dates: start: 20210422

REACTIONS (12)
  - Lymphadenopathy [Unknown]
  - COVID-19 [Unknown]
  - Urticaria [Recovered/Resolved]
  - Rash maculo-papular [Recovering/Resolving]
  - Skin toxicity [Recovering/Resolving]
  - Pulmonary mass [Unknown]
  - Pericardial effusion [Unknown]
  - Benign prostatic hyperplasia [Unknown]
  - Bladder diverticulum [Unknown]
  - Bladder hypertrophy [Unknown]
  - Splenic lesion [Unknown]
  - Tumour pseudoprogression [Unknown]
